FAERS Safety Report 10285416 (Version 1)
Quarter: 2014Q3

REPORT INFORMATION
  Report Type: Spontaneous
  Country: US (occurrence: US)
  Receive Date: 20140708
  Receipt Date: 20140708
  Transmission Date: 20150326
  Serious: Yes (Other)
  Sender: FDA-Public Use
  Company Number: US-BRISTOL-MYERS SQUIBB COMPANY-21147384

PATIENT
  Age: 61 Year
  Sex: Female
  Weight: 131.09 kg

DRUGS (17)
  1. FORTAMET [Concomitant]
     Active Substance: METFORMIN HYDROCHLORIDE
     Dosage: TABLET, EXTENDED RELEASE 60 TABLET
     Route: 048
  2. HYOMAX-SR [Concomitant]
     Active Substance: HYOSCYAMINE SULFATE
     Dosage: EXTENDED RELEASE
     Route: 048
     Dates: start: 20100730
  3. ADVAIR DISKUS [Concomitant]
     Active Substance: FLUTICASONE PROPIONATE\SALMETEROL XINAFOATE
     Dosage: 1DF=250-50 MCG: 1 PUFF
     Dates: start: 20100730
  4. CYMBALTA [Concomitant]
     Active Substance: DULOXETINE HYDROCHLORIDE
     Route: 048
     Dates: start: 20100730
  5. MAXIDEX [Concomitant]
     Active Substance: DEXAMETHASONE
     Dosage: 1DF=50MG-75MG
     Route: 048
     Dates: start: 20100730
  6. BYETTA [Suspect]
     Active Substance: EXENATIDE
     Indication: TYPE 2 DIABETES MELLITUS
     Route: 058
     Dates: start: 20100607, end: 201112
  7. NORVASC [Concomitant]
     Active Substance: AMLODIPINE BESYLATE
     Dosage: TABLET, EXTENDED RELEASE
     Route: 048
     Dates: start: 20110304
  8. VICTOZA [Suspect]
     Active Substance: LIRAGLUTIDE
     Dates: start: 20120718, end: 201212
  9. AVELOX [Concomitant]
     Active Substance: MOXIFLOXACIN HYDROCHLORIDE
     Route: 048
     Dates: start: 20110705
  10. ASPIRIN. [Concomitant]
     Active Substance: ASPIRIN
     Route: 048
     Dates: start: 20110304
  11. PROVENTIL [Concomitant]
     Active Substance: ALBUTEROL
     Indication: WHEEZING
     Dates: start: 20100730
  12. TOPROL XL [Concomitant]
     Active Substance: METOPROLOL SUCCINATE
     Dosage: EXTENDED RELEASE
     Route: 048
     Dates: start: 20110304
  13. POTASSIUM CHLORIDE. [Concomitant]
     Active Substance: POTASSIUM CHLORIDE
     Dosage: TABLET, EXTENDED RELEASE
     Route: 048
     Dates: start: 20110304
  14. SYNTHROID [Concomitant]
     Active Substance: LEVOTHYROXINE SODIUM
     Route: 048
  15. ZOCOR [Concomitant]
     Active Substance: SIMVASTATIN
     Dosage: AT BEDTIME
     Route: 048
  16. LISINOPRIL. [Concomitant]
     Active Substance: LISINOPRIL
     Route: 048
     Dates: start: 20100730
  17. OXYCODONE HCL + ACETAMINOPHEN [Concomitant]
     Active Substance: ACETAMINOPHEN\OXYCODONE HYDROCHLORIDE
     Indication: PAIN
     Dosage: 7.5 MG-325 MG TABLET
     Route: 048
     Dates: start: 20110304

REACTIONS (1)
  - Pancreatic carcinoma [Unknown]

NARRATIVE: CASE EVENT DATE: 2012
